FAERS Safety Report 5014511-1 (Version None)
Quarter: 2006Q2

REPORT INFORMATION
  Report Type: 
  Country: None (occurrence: None)
  Receive Date: 20060531
  Receipt Date: 20060517
  Transmission Date: 20061013
  Serious: Yes (Hospitalization)
  Sender: FDA-Public Use
  Company Number: US-AMGEN-US179808

PATIENT
  Sex: Female

DRUGS (14)
  1. ARANESP [Suspect]
     Indication: RENAL FAILURE CHRONIC
     Dates: start: 20060308
  2. ZETIA [Concomitant]
  3. DILTIAZEM [Concomitant]
  4. LASIX [Concomitant]
  5. METOLAZONE [Concomitant]
  6. TYLENOL (GELTAB) [Concomitant]
  7. NEURONTIN [Concomitant]
  8. PRAVACHOL [Concomitant]
  9. ISOSORBIDE DINITRATE [Concomitant]
  10. LEXAPRO [Concomitant]
  11. HYDRALAZINE HYDROCHLORIDE [Concomitant]
  12. COMBIVENT [Concomitant]
  13. KEFLEX [Concomitant]
  14. INSULIN INSULATARD NPH NORDISK [Concomitant]

REACTIONS (1)
  - HAEMOGLOBIN DECREASED [None]
